FAERS Safety Report 8409345 (Version 3)
Quarter: 2015Q2

REPORT INFORMATION
  Report Type: Spontaneous
  Country: FR (occurrence: FR)
  Receive Date: 20120216
  Receipt Date: 20150427
  Transmission Date: 20150821
  Serious: Yes (Death, Other)
  Sender: FDA-Public Use
  Company Number: FR-ELI_LILLY_AND_COMPANY-FR201202003369

PATIENT
  Age: 52 Year
  Sex: Male

DRUGS (12)
  1. TAHOR [Concomitant]
     Active Substance: ATORVASTATIN CALCIUM
     Dosage: 80 MG, UNK
  2. NOVORAPID [Concomitant]
     Active Substance: INSULIN ASPART
  3. EFIENT [Suspect]
     Active Substance: PRASUGREL HYDROCHLORIDE
     Indication: STENT PLACEMENT
     Dosage: 10 MG, QD
     Route: 048
  4. TIORFAN [Concomitant]
     Active Substance: RACECADOTRIL
     Indication: DYSPEPSIA
     Dosage: UNK
     Dates: start: 201201
  5. KARDEGIC [Concomitant]
     Active Substance: ASPIRIN LYSINE
     Dosage: 75 MG, UNK
  6. RAMIPRIL. [Concomitant]
     Active Substance: RAMIPRIL
     Dosage: 1.25 MG, UNK
  7. EFFIZINC [Suspect]
     Active Substance: ZINC GLUCONATE
     Indication: PRODUCT USED FOR UNKNOWN INDICATION
     Dosage: UNK, UNKNOWN
     Route: 048
     Dates: end: 20120201
  8. NICOTINE. [Concomitant]
     Active Substance: NICOTINE
  9. OMACOR [Concomitant]
     Active Substance: OMEGA-3-ACID ETHYL ESTERS
  10. CARDENSIEL [Concomitant]
     Active Substance: BISOPROLOL FUMARATE
     Dosage: 2.5 MG, UNK
  11. LASILIX                            /00032601/ [Concomitant]
     Active Substance: FUROSEMIDE
     Dosage: 40 MG, UNK
  12. GAVISCON                           /00902401/ [Concomitant]
     Indication: DYSPEPSIA
     Dosage: UNK
     Dates: start: 201201

REACTIONS (14)
  - Loss of consciousness [None]
  - Cyanosis [None]
  - Cardiac arrest [None]
  - Drug dispensing error [None]
  - Thrombosis in device [Fatal]
  - Drug dispensing error [Recovered/Resolved]
  - Cardio-respiratory arrest [None]
  - Chest pain [Unknown]
  - Sudden death [Fatal]
  - Syncope [None]
  - Product name confusion [Unknown]
  - Vomiting [None]
  - Malaise [None]
  - Drug dose omission [Recovered/Resolved]

NARRATIVE: CASE EVENT DATE: 20120202
